FAERS Safety Report 13905000 (Version 2)
Quarter: 2017Q3

REPORT INFORMATION
  Report Type: Spontaneous
  Country: US (occurrence: US)
  Receive Date: 20170825
  Receipt Date: 20170918
  Transmission Date: 20171127
  Serious: Yes (Other)
  Sender: FDA-Public Use
  Company Number: US-PFIZER INC-2017365603

PATIENT
  Age: 61 Year
  Sex: Male
  Weight: 86.17 kg

DRUGS (1)
  1. XALKORI [Suspect]
     Active Substance: CRIZOTINIB
     Indication: LUNG CANCER METASTATIC
     Dosage: 250 MG, 2X/DAY
     Route: 048
     Dates: start: 20170815

REACTIONS (8)
  - Fatigue [Unknown]
  - Dizziness [Unknown]
  - Muscular weakness [Unknown]
  - Diarrhoea [Unknown]
  - Dehydration [Unknown]
  - Fall [Unknown]
  - Blood pressure decreased [Unknown]
  - Myopathy [Unknown]

NARRATIVE: CASE EVENT DATE: 20170903
